FAERS Safety Report 7921436-8 (Version None)
Quarter: 2011Q4

REPORT INFORMATION
  Report Type: 
  Country: None (occurrence: None)
  Receive Date: 20111117
  Receipt Date: 20111114
  Transmission Date: 20120403
  Serious: Yes (Hospitalization, Other)
  Sender: FDA-Public Use
  Company Number: DE-ABBOTT-11P-062-0699811-00

PATIENT
  Sex: Male

DRUGS (6)
  1. OMEGA [Concomitant]
     Indication: GASTRITIS
     Route: 048
  2. HUMIRA [Suspect]
     Indication: CROHN'S DISEASE
     Dosage: INITIAL DOSE, WEEK ZERO
     Route: 058
     Dates: start: 20101215
  3. HUMIRA [Suspect]
     Dosage: WEEK TWO
     Route: 058
  4. OMEPRAZOLE [Concomitant]
     Indication: PRODUCT USED FOR UNKNOWN INDICATION
     Route: 048
  5. HUMIRA [Suspect]
     Route: 058
     Dates: end: 20110815
  6. HUMIRA [Suspect]
     Dates: start: 20110901

REACTIONS (4)
  - BILIARY DRAINAGE [None]
  - CHOLELITHIASIS [None]
  - BILIARY COLIC [None]
  - ADHESION [None]
